FAERS Safety Report 5236944-0 (Version None)
Quarter: 2007Q1

REPORT INFORMATION
  Report Type: 
  Country: None (occurrence: None)
  Receive Date: 20070213
  Receipt Date: 20070202
  Transmission Date: 20070707
  Serious: Yes (Disabling, Other)
  Sender: FDA-Public Use
  Company Number: PHNU2006DE03736

PATIENT
  Sex: Male

DRUGS (16)
  1. SANDIMMUNE [Suspect]
     Indication: APLASTIC ANAEMIA
     Dosage: UNK, UNK
     Dates: start: 20020101, end: 20060701
  2. PREDNISONE [Suspect]
  3. GLYBURIDE [Concomitant]
  4. METFORMIN HCL [Concomitant]
  5. VIAGRA [Concomitant]
  6. BISOPROLOL FUMARATE [Concomitant]
  7. MAGNESIUM [Concomitant]
  8. ASCORBIC ACID [Concomitant]
  9. VITAMIN B6 [Concomitant]
  10. PLAVIX [Concomitant]
  11. CIALIS [Concomitant]
  12. DESFERAL [Concomitant]
  13. OMEPRAZOLE [Concomitant]
  14. LISINOPRIL [Concomitant]
  15. ISMO [Concomitant]
  16. URSO FALK [Concomitant]

REACTIONS (9)
  - ACCOMMODATION DISORDER [None]
  - ANTISOCIAL BEHAVIOUR [None]
  - CONSCIOUSNESS FLUCTUATING [None]
  - DEPRESSION [None]
  - DIABETES MELLITUS NON-INSULIN-DEPENDENT [None]
  - LOSS OF LIBIDO [None]
  - MANIA [None]
  - MEMORY IMPAIRMENT [None]
  - MOOD ALTERED [None]
